FAERS Safety Report 12584809 (Version 1)
Quarter: 2016Q3

REPORT INFORMATION
  Report Type: Spontaneous
  Country: BR (occurrence: BR)
  Receive Date: 20160722
  Receipt Date: 20160722
  Transmission Date: 20161109
  Serious: Yes (Life-Threatening, Other)
  Sender: FDA-Public Use
  Company Number: BR-ASTRAZENECA-2016SE79311

PATIENT
  Age: 26 Year
  Sex: Male

DRUGS (8)
  1. ALLOPURINOL. [Suspect]
     Active Substance: ALLOPURINOL
     Dosage: ONCE/SINGLE ADMINISTRATION 2 PACKAGES
     Route: 048
     Dates: start: 20160714, end: 20160714
  2. NEXIUM [Suspect]
     Active Substance: ESOMEPRAZOLE MAGNESIUM
     Dosage: ONCE/SINGLE ADMINISTRATION 2 PACKAGES
     Route: 048
     Dates: start: 20160714, end: 20160714
  3. LITHIUM. [Suspect]
     Active Substance: LITHIUM
     Dosage: ONCE/SINGLE ADMINISTRATION 4 PACKAGES
     Route: 048
     Dates: start: 20160714, end: 20160714
  4. BROMAZEPAM [Suspect]
     Active Substance: BROMAZEPAM
     Dosage: ONCE/SINGLE ADMINISTRATION 10 TABLETS
     Route: 048
     Dates: start: 20160714, end: 20160714
  5. SERTRALINE [Suspect]
     Active Substance: SERTRALINE HYDROCHLORIDE
     Dosage: ONCE/SINGLE ADMINISTRATION 2 PACKAGES
     Route: 048
     Dates: start: 20160714, end: 20160714
  6. RANITIDINE. [Suspect]
     Active Substance: RANITIDINE
     Dosage: ONCE/SINGLE ADMINISTRATION 2 PACKAGES
     Route: 048
     Dates: start: 20160714, end: 20160714
  7. PIOGLITAZONE. [Suspect]
     Active Substance: PIOGLITAZONE
     Dosage: ONCE/SINGLE ADMINISTRATION 2 PACKAGES
     Route: 048
     Dates: start: 20160714, end: 20160714
  8. PREDNISOLONE. [Suspect]
     Active Substance: PREDNISOLONE
     Dosage: ONCE/SINGLE ADMINISTRATION 2 PACKAGES
     Route: 048
     Dates: start: 20160714, end: 20160714

REACTIONS (2)
  - Suicide attempt [Not Recovered/Not Resolved]
  - Nausea [Not Recovered/Not Resolved]

NARRATIVE: CASE EVENT DATE: 20160714
